FAERS Safety Report 20673271 (Version 1)
Quarter: 2022Q2

REPORT INFORMATION
  Report Type: Spontaneous
  Country: DE (occurrence: DE)
  Receive Date: 20220405
  Receipt Date: 20220405
  Transmission Date: 20220721
  Serious: Yes (Other)
  Sender: FDA-Public Use
  Company Number: None

PATIENT
  Age: 44 Year
  Sex: Female
  Weight: 65 kg

DRUGS (1)
  1. CYTOTEC [Suspect]
     Active Substance: MISOPROSTOL
     Indication: Labour induction
     Dosage: 0.25 DF, SINGLE (1/4 TABLET)
     Route: 054
     Dates: start: 20130717, end: 20130717

REACTIONS (7)
  - Postpartum haemorrhage [Recovered/Resolved]
  - Uterine cervical laceration [Recovered/Resolved]
  - Precipitate labour [Recovered/Resolved]
  - Perineal injury [Recovered/Resolved]
  - Gait disturbance [Recovering/Resolving]
  - Off label use [Unknown]
  - Off label use [Unknown]

NARRATIVE: CASE EVENT DATE: 20130701
